FAERS Safety Report 5942068-7 (Version None)
Quarter: 2008Q4

REPORT INFORMATION
  Report Type: 
  Country: None (occurrence: None)
  Receive Date: 20081105
  Receipt Date: 20081030
  Transmission Date: 20090506
  Serious: Yes (Other)
  Sender: FDA-Public Use
  Company Number: A0754838A

PATIENT
  Sex: Female

DRUGS (1)
  1. VENTOLIN [Suspect]
     Indication: DRUG USE FOR UNKNOWN INDICATION
     Route: 065

REACTIONS (8)
  - ALOPECIA [None]
  - ANGINA PECTORIS [None]
  - CHILLS [None]
  - CHOKING [None]
  - COUGH [None]
  - DRUG INEFFECTIVE [None]
  - MALAISE [None]
  - PAIN [None]
